FAERS Safety Report 23198729 (Version 1)
Quarter: 2023Q4

REPORT INFORMATION
  Report Type: Spontaneous
  Country: CA (occurrence: CA)
  Receive Date: 20231117
  Receipt Date: 20231117
  Transmission Date: 20240109
  Serious: Yes (Other)
  Sender: FDA-Public Use
  Company Number: CA-PFIZER INC-202300367558

PATIENT
  Age: 51 Year
  Sex: Female

DRUGS (7)
  1. OXALIPLATIN [Suspect]
     Active Substance: OXALIPLATIN
  2. AKYNZEO (NETUPITANT\PALONOSETRON) [Concomitant]
     Active Substance: NETUPITANT\PALONOSETRON
  3. CAPECITABINE [Concomitant]
     Active Substance: CAPECITABINE
  4. DEXAMETHASONE [Concomitant]
     Active Substance: DEXAMETHASONE
     Route: 065
  5. LOPERAMIDE [Concomitant]
     Active Substance: LOPERAMIDE
  6. OLANZAPINE [Concomitant]
     Active Substance: OLANZAPINE
  7. PANTOPRAZOLE [Concomitant]
     Active Substance: PANTOPRAZOLE

REACTIONS (5)
  - Dyspnoea [Recovering/Resolving]
  - Laryngospasm [Recovering/Resolving]
  - Nausea [Recovering/Resolving]
  - Stridor [Recovering/Resolving]
  - Vomiting [Recovering/Resolving]
